FAERS Safety Report 16781866 (Version 3)
Quarter: 2019Q3

REPORT INFORMATION
  Report Type: Report from Study
  Country: US (occurrence: US)
  Receive Date: 20190906
  Receipt Date: 20190927
  Transmission Date: 20191005
  Serious: Yes (Hospitalization, Other)
  Sender: FDA-Public Use
  Company Number: US-BRISTOL-MYERS SQUIBB COMPANY-BMS-2019-085910

PATIENT
  Age: 40 Year
  Sex: Male
  Weight: 81.3 kg

DRUGS (17)
  1. TYLENOL [Concomitant]
     Active Substance: ACETAMINOPHEN
     Indication: HEADACHE
     Dosage: 975 ABSENT X1
     Route: 048
     Dates: start: 20190829
  2. NIVOLUMAB [Suspect]
     Active Substance: NIVOLUMAB
     Indication: PLASMA CELL MYELOMA
     Dosage: 250 MILLIGRAM, Q3WK
     Route: 042
     Dates: start: 20190827
  3. CARFILZOMIB [Suspect]
     Active Substance: CARFILZOMIB
     Indication: PLASMA CELL MYELOMA
     Dosage: 40 MILLIGRAM, DAY 1 AND 2
     Route: 042
     Dates: start: 20190826
  4. MS CONTIN [Concomitant]
     Active Substance: MORPHINE SULFATE
     Indication: PRODUCT USED FOR UNKNOWN INDICATION
     Dosage: 15 MILLIGRAM, TID
     Route: 048
     Dates: start: 20190827
  5. CALCITONIN [Concomitant]
     Active Substance: CALCITONIN
     Indication: HYPERCALCAEMIA
     Dosage: 340 MILLIGRAM X1
     Route: 042
     Dates: start: 20190822, end: 20190822
  6. PROTONIX [OMEPRAZOLE] [Concomitant]
     Active Substance: OMEPRAZOLE
     Indication: GASTROOESOPHAGEAL REFLUX DISEASE
     Dosage: 40 MILLIGRAM, QD
     Route: 048
     Dates: start: 2015
  7. MVI [VITAMINS NOS] [Concomitant]
     Indication: ADVERSE EVENT
     Dosage: 1 TAB, QD
     Route: 048
     Dates: start: 20170822
  8. COLACE [Concomitant]
     Active Substance: DOCUSATE SODIUM
     Indication: CONSTIPATION
     Dosage: 100 MILLIGRAM, QD
     Route: 048
     Dates: start: 20170830
  9. NORMAL SALINE [Concomitant]
     Active Substance: SODIUM CHLORIDE
     Indication: PRODUCT USED FOR UNKNOWN INDICATION
     Dosage: 1 LITERX1
     Route: 042
     Dates: start: 20190829, end: 20190829
  10. OXYCODONE [Concomitant]
     Active Substance: OXYCODONE
     Indication: MUSCULOSKELETAL CHEST PAIN
     Route: 065
  11. ZOMETA [Concomitant]
     Active Substance: ZOLEDRONIC ACID
     Indication: HYPERCALCAEMIA
     Dosage: 4 MILLIGRAM X1
     Route: 042
     Dates: start: 20190821
  12. ACYCLOVIR [ACICLOVIR SODIUM] [Concomitant]
     Active Substance: ACYCLOVIR
     Indication: PROPHYLAXIS
     Dosage: 400 MILLIGRAM, BID
     Route: 048
  13. MS CONTIN [Concomitant]
     Active Substance: MORPHINE SULFATE
     Indication: MUSCULOSKELETAL CHEST PAIN
     Dosage: 15 MILLIGRAM, Q12H
     Route: 048
     Dates: start: 20190819, end: 20190827
  14. OXYCODONE [Concomitant]
     Active Substance: OXYCODONE
     Indication: BACK PAIN
     Dosage: 5 MILLIGRAM, Q4H, PRN
     Route: 048
     Dates: start: 20170830
  15. CALCITONIN [Concomitant]
     Active Substance: CALCITONIN
     Indication: PRODUCT USED FOR UNKNOWN INDICATION
     Dosage: 340 MILLIGRAM X1
     Route: 042
     Dates: start: 20190823, end: 20190823
  16. POTASSIUM PHOSPHATES [Concomitant]
     Active Substance: POTASSIUM PHOSPHATE, DIBASIC\POTASSIUM PHOSPHATE, MONOBASIC
     Indication: HYPOPHOSPHATAEMIA
     Dosage: 500 MILLIGRAM, BID
     Route: 048
     Dates: start: 20190823, end: 20190825
  17. NORMAL SALINE [Concomitant]
     Active Substance: SODIUM CHLORIDE
     Indication: HYPERCALCAEMIA
     Dosage: 1 LITERX1
     Route: 042
     Dates: start: 20190822, end: 20190822

REACTIONS (1)
  - Cancer pain [Recovering/Resolving]

NARRATIVE: CASE EVENT DATE: 20190830
